FAERS Safety Report 4452726-1 (Version None)
Quarter: 2004Q3

REPORT INFORMATION
  Report Type: 
  Country: None (occurrence: None)
  Receive Date: 20040813
  Receipt Date: 20040617
  Transmission Date: 20050211
  Serious: No
  Sender: FDA-Public Use
  Company Number: S04-USA-03656-01

PATIENT
  Age: 79 Year
  Sex: Male

DRUGS (16)
  1. NAMENDA [Suspect]
     Indication: DEMENTIA ALZHEIMER'S TYPE
     Dosage: 10 MG QD PO
     Route: 048
  2. NAMENDA [Suspect]
     Indication: DEMENTIA ALZHEIMER'S TYPE
     Dosage: 15 MG QD PO
     Route: 048
  3. NAMENDA [Suspect]
     Indication: DEMENTIA ALZHEIMER'S TYPE
     Dosage: 20 MG QD PO
     Route: 048
  4. NAMENDA [Suspect]
     Indication: DEMENTIA ALZHEIMER'S TYPE
     Dosage: 5 MG QD PO
     Route: 048
  5. EXELON [Concomitant]
  6. LEXAPRO [Concomitant]
  7. DILANTIN [Concomitant]
  8. FOSAMAX [Concomitant]
  9. PRAVACHOL [Concomitant]
  10. ATENOLOL [Concomitant]
  11. .. [Concomitant]
  12. .. [Concomitant]
  13. .. [Concomitant]
  14. .. [Concomitant]
  15. .. [Concomitant]
  16. .. [Concomitant]

REACTIONS (3)
  - ABNORMAL BEHAVIOUR [None]
  - AGITATION [None]
  - IRRITABILITY [None]
